FAERS Safety Report 7127600-2 (Version None)
Quarter: 2010Q4

REPORT INFORMATION
  Report Type: 
  Country: None (occurrence: None)
  Receive Date: 20101129
  Receipt Date: 20101028
  Transmission Date: 20110411
  Serious: Yes (Other)
  Sender: FDA-Public Use
  Company Number: GB-AMGEN-GBRCT2010002271

PATIENT

DRUGS (9)
  1. ETANERCEPT [Suspect]
     Indication: RHEUMATOID ARTHRITIS
     Dosage: 25 MG, 2 TIMES/WK
     Route: 058
     Dates: start: 20040815
  2. VITAMIN B-12 [Concomitant]
     Dosage: UNKNOWN
  3. CALCIUM WITH VITAMIN D [Concomitant]
     Dosage: UNKNOWN
  4. PREMARIN [Concomitant]
     Dosage: UNKNOWN
  5. DIHYDROCODEINE BITARTRATE INJ [Concomitant]
     Dosage: UNKNOWN
  6. GAVISCON [Concomitant]
     Dosage: UNKNOWN
  7. INDOMETHACIN [Concomitant]
     Dosage: UNKNOWN
  8. PREDNISOLONE [Concomitant]
     Dosage: UNKNOWN
  9. CIMETIDINE [Concomitant]
     Dosage: UNKNOWN

REACTIONS (1)
  - MALIGNANT MELANOMA IN SITU [None]
